FAERS Safety Report 6174033-1 (Version None)
Quarter: 2009Q2

REPORT INFORMATION
  Report Type: 
  Country: None (occurrence: None)
  Receive Date: 20090430
  Receipt Date: 20080220
  Transmission Date: 20091009
  Serious: No
  Sender: FDA-Public Use
  Company Number: US-ASTRAZENECA-2008UW03661

PATIENT
  Age: 65 Year
  Sex: Female
  Weight: 117.9 kg

DRUGS (11)
  1. NEXIUM [Suspect]
     Indication: GASTROOESOPHAGEAL REFLUX DISEASE
     Route: 048
  2. ZETIA [Concomitant]
  3. FISH OIL [Concomitant]
  4. MULTI-VITAMINS [Concomitant]
  5. GLUCOSAMINE [Concomitant]
  6. DIOVAN [Concomitant]
  7. TRAZODONE HCL [Concomitant]
  8. ENABLEX [Concomitant]
  9. LASIX [Concomitant]
  10. VITAMIN K [Concomitant]
  11. ASPIRIN [Concomitant]
     Route: 048

REACTIONS (1)
  - PYLORIC STENOSIS [None]
